FAERS Safety Report 13599006 (Version 1)
Quarter: 2017Q2

REPORT INFORMATION
  Report Type: Spontaneous
  Country: RU (occurrence: RU)
  Receive Date: 20170531
  Receipt Date: 20170531
  Transmission Date: 20170830
  Serious: Yes (Other)
  Sender: FDA-Public Use
  Company Number: RU-SA-2017SA097092

PATIENT
  Age: 57 Year
  Sex: Female
  Weight: 118 kg

DRUGS (5)
  1. SERETIDE [Concomitant]
     Active Substance: FLUTICASONE PROPIONATE\SALMETEROL XINAFOATE
     Indication: ASTHMA
     Dosage: 2 INHALATIONS IN CASE OF AN ATTACK.
     Route: 055
  2. HUMALOG [Suspect]
     Active Substance: INSULIN LISPRO
     Indication: TYPE 2 DIABETES MELLITUS
     Dosage: DOSE-12+12+12 IU
     Route: 058
     Dates: start: 2016
  3. DIABETON MB [Suspect]
     Active Substance: GLICLAZIDE
     Indication: TYPE 2 DIABETES MELLITUS
     Route: 048
     Dates: start: 2007
  4. LANTUS [Suspect]
     Active Substance: INSULIN GLARGINE
     Indication: TYPE 2 DIABETES MELLITUS
     Route: 058
     Dates: start: 2004
  5. METFORMIN [Suspect]
     Active Substance: METFORMIN HYDROCHLORIDE
     Indication: TYPE 2 DIABETES MELLITUS
     Route: 048
     Dates: start: 2007

REACTIONS (4)
  - Cataract [Unknown]
  - Blood glucose increased [Not Recovered/Not Resolved]
  - Glaucoma [Unknown]
  - Leg amputation [Unknown]

NARRATIVE: CASE EVENT DATE: 2007
